FAERS Safety Report 9774426 (Version 4)
Quarter: 2014Q1

REPORT INFORMATION
  Report Type: Spontaneous
  Country: JP (occurrence: JP)
  Receive Date: 20131220
  Receipt Date: 20140205
  Transmission Date: 20141002
  Serious: Yes (Death, Life-Threatening, Hospitalization, Disabling, Other)
  Sender: FDA-Public Use
  Company Number: JP-ELI_LILLY_AND_COMPANY-JP201312005994

PATIENT
  Age: 72 Year
  Sex: Female
  Weight: 67.2 kg

DRUGS (7)
  1. CYMBALTA [Suspect]
     Indication: DEPRESSION
     Dosage: 20 MG, QD
     Route: 048
     Dates: start: 20131029, end: 20131030
  2. BAKTAR [Suspect]
     Indication: ANTIFUNGAL PROPHYLAXIS
     Dosage: 0.5 G, QD
     Route: 048
     Dates: start: 20131205, end: 20131212
  3. PARIET [Concomitant]
     Indication: GASTROOESOPHAGEAL REFLUX DISEASE
     Dosage: 10 MG, QD
     Route: 048
  4. VOGLIBOSE [Concomitant]
     Indication: DIABETES MELLITUS
     Dosage: 0.3 G, BID
     Route: 048
  5. CLOTIAZEPAM [Concomitant]
     Indication: DEPRESSION
     Dosage: 5 MG, TID
     Route: 048
  6. MAGNESIUM OXIDE [Concomitant]
     Indication: CONSTIPATION
     Dosage: 0.5 G, TID
     Route: 048
     Dates: start: 20131111
  7. MYSLEE [Concomitant]
     Indication: INSOMNIA
     Dosage: 10 MG, QD
     Route: 048

REACTIONS (6)
  - Pneumocystis jirovecii pneumonia [Fatal]
  - Platelet count decreased [Not Recovered/Not Resolved]
  - Pneumonia cytomegaloviral [Not Recovered/Not Resolved]
  - Nephrotic syndrome [Not Recovered/Not Resolved]
  - Renal failure acute [Not Recovered/Not Resolved]
  - Cardiac failure [Unknown]
